FAERS Safety Report 15969821 (Version 2)
Quarter: 2019Q2

REPORT INFORMATION
  Report Type: Spontaneous
  Country: PT (occurrence: PT)
  Receive Date: 20190215
  Receipt Date: 20190603
  Transmission Date: 20190711
  Serious: Yes (Hospitalization, Other)
  Sender: FDA-Public Use
  Company Number: PHHY2019PT002294

PATIENT
  Age: 5 Year
  Sex: Female

DRUGS (4)
  1. ACYCLOVIR. [Suspect]
     Active Substance: ACYCLOVIR
     Indication: ANTIVIRAL TREATMENT
  2. HYDROXYZINE [Concomitant]
     Active Substance: HYDROXYZINE HYDROCHLORIDE
     Indication: VARICELLA
     Dosage: UNK
     Route: 065
  3. ACYCLOVIR. [Suspect]
     Active Substance: ACYCLOVIR
     Indication: VARICELLA
     Dosage: UNK
     Route: 065
  4. PARACETAMOL [Suspect]
     Active Substance: ACETAMINOPHEN
     Indication: VARICELLA
     Dosage: UNK
     Route: 065

REACTIONS (22)
  - Leukocytosis [Recovered/Resolved]
  - Stevens-Johnson syndrome [Recovering/Resolving]
  - Conjunctival hyperaemia [Unknown]
  - Vaginal lesion [Recovered/Resolved]
  - Keratitis [Recovered/Resolved]
  - Eyelid oedema [Recovered/Resolved]
  - Eye disorder [Recovered/Resolved]
  - Restlessness [Recovered/Resolved]
  - Ocular hyperaemia [Recovered/Resolved]
  - Ill-defined disorder [Unknown]
  - Anxiety [Recovered/Resolved]
  - Neutrophilia [Recovered/Resolved]
  - Condition aggravated [Recovered/Resolved]
  - Skin fissures [Recovered/Resolved]
  - Mouth ulceration [Recovered/Resolved]
  - Vulvovaginal erythema [Recovered/Resolved]
  - Conjunctivitis [Unknown]
  - Product use issue [Unknown]
  - Ketonuria [Recovered/Resolved]
  - Vulvovaginitis [Recovered/Resolved]
  - Decreased appetite [Recovered/Resolved]
  - Conjunctival haemorrhage [Recovered/Resolved]

NARRATIVE: CASE EVENT DATE: 201508
